FAERS Safety Report 9542073 (Version 2)
Quarter: 2013Q3

REPORT INFORMATION
  Report Type: Spontaneous
  Country: SE (occurrence: SE)
  Receive Date: 20130923
  Receipt Date: 20130923
  Transmission Date: 20140515
  Serious: Yes (Other)
  Sender: FDA-Public Use
  Company Number: SE-ASTELLAS-2013EU007456

PATIENT
  Age: 65 Year
  Sex: Male

DRUGS (1)
  1. BETMIGA [Suspect]
     Indication: INCONTINENCE
     Dosage: 50 MG, UID/QD
     Route: 065

REACTIONS (2)
  - Malaise [Recovering/Resolving]
  - Tachycardia [Recovering/Resolving]
